FAERS Safety Report 12132550 (Version 1)
Quarter: 2016Q1

REPORT INFORMATION
  Report Type: Spontaneous
  Country: NL (occurrence: NL)
  Receive Date: 20160301
  Receipt Date: 20160301
  Transmission Date: 20160526
  Serious: Yes (Hospitalization, Disabling)
  Sender: FDA-Public Use
  Company Number: NL-IPSEN BIOPHARMACEUTICALS, INC.-2016-01735

PATIENT
  Age: 45 Year
  Sex: Female
  Weight: 85 kg

DRUGS (5)
  1. CABERGOLINE. [Concomitant]
     Active Substance: CABERGOLINE
  2. NOVORAPID [Concomitant]
     Active Substance: INSULIN ASPART
  3. PANTOPRAZOLE [Concomitant]
     Active Substance: PANTOPRAZOLE SODIUM
  4. SOMATULINE AUTOGEL [Suspect]
     Active Substance: LANREOTIDE ACETATE
     Indication: NEUROENDOCRINE TUMOUR
     Dosage: 90MG
     Route: 058
     Dates: start: 201407, end: 201602
  5. CREON [Concomitant]
     Active Substance: PANCRELIPASE AMYLASE\PANCRELIPASE LIPASE\PANCRELIPASE PROTEASE

REACTIONS (2)
  - Lower limb fracture [Not Recovered/Not Resolved]
  - Fracture delayed union [Not Recovered/Not Resolved]

NARRATIVE: CASE EVENT DATE: 201512
